FAERS Safety Report 21623443 (Version 1)
Quarter: 2022Q4

REPORT INFORMATION
  Report Type: Spontaneous
  Country: US (occurrence: US)
  Receive Date: 20221121
  Receipt Date: 20221121
  Transmission Date: 20230113
  Serious: Yes (Death, Hospitalization, Other)
  Sender: FDA-Public Use
  Company Number: US-FreseniusKabi-FK202216382

PATIENT
  Age: 67 Year
  Sex: Male

DRUGS (5)
  1. METHOTREXATE [Suspect]
     Active Substance: METHOTREXATE
     Indication: Psoriasis
     Dosage: WITHOUT FOLIC ACID SUPPLEMENTATION FOR THE LAST 3 MONTHS BY AN OUTSIDE DERMATOLOGY NURSE PRACTITIONE
     Route: 065
  2. APREMILAST [Concomitant]
     Active Substance: APREMILAST
     Indication: Psoriasis
     Dosage: FOR APPROXIMATELY 4 MONTHS.
  3. ASPIRIN [Concomitant]
     Active Substance: ASPIRIN
     Indication: Product used for unknown indication
  4. FILGRASTIM [Concomitant]
     Active Substance: FILGRASTIM
     Indication: Neutropenia
  5. LEUCOVORIN [Concomitant]
     Active Substance: LEUCOVORIN
     Indication: Toxicity to various agents

REACTIONS (2)
  - Multiple organ dysfunction syndrome [Fatal]
  - Pancytopenia [Not Recovered/Not Resolved]
